FAERS Safety Report 6231502-3 (Version None)
Quarter: 2009Q2

REPORT INFORMATION
  Report Type: 
  Country: None (occurrence: None)
  Receive Date: 20090616
  Receipt Date: 20090608
  Transmission Date: 20091009
  Serious: Yes (Death)
  Sender: FDA-Public Use
  Company Number: B0533570A

PATIENT
  Age: 55 Year
  Sex: Female

DRUGS (1)
  1. ATRIANCE [Suspect]
     Indication: DRUG USE FOR UNKNOWN INDICATION
     Route: 065

REACTIONS (2)
  - ACUTE POLYNEUROPATHY [None]
  - DISEASE PROGRESSION [None]
